FAERS Safety Report 15729455 (Version 2)
Quarter: 2018Q4

REPORT INFORMATION
  Report Type: Spontaneous
  Country: US (occurrence: US)
  Receive Date: 20181217
  Receipt Date: 20181224
  Transmission Date: 20190205
  Serious: No
  Sender: FDA-Public Use
  Company Number: US-009507513-1812USA007857

PATIENT
  Age: 26 Year
  Sex: Female
  Weight: 191.38 kg

DRUGS (2)
  1. NEXPLANON [Suspect]
     Active Substance: ETONOGESTREL
     Dosage: ONE (STRENGTH: 68 MG) UNIT
     Route: 059
     Dates: start: 20181210
  2. NEXPLANON [Suspect]
     Active Substance: ETONOGESTREL
     Dosage: ONE (STRENGTH: 68 MG) UNIT
     Route: 059
     Dates: start: 20181210

REACTIONS (3)
  - Complication of device insertion [Recovered/Resolved]
  - Product quality issue [Unknown]
  - Device difficult to use [Recovered/Resolved]

NARRATIVE: CASE EVENT DATE: 20181210
